FAERS Safety Report 7685744-0 (Version None)
Quarter: 2011Q3

REPORT INFORMATION
  Report Type: 
  Country: None (occurrence: None)
  Receive Date: 20110815
  Receipt Date: 20110815
  Transmission Date: 20111222
  Serious: Yes (Other)
  Sender: FDA-Public Use
  Company Number: None

PATIENT
  Age: 33 Year
  Sex: Female
  Weight: 78 kg

DRUGS (14)
  1. PREDNISOLONE [Concomitant]
  2. ZOLPIDEM [Concomitant]
  3. FENTANYL [Concomitant]
  4. DULOXETIME HYDROCHLORIDE [Concomitant]
  5. PANTOPRAZOLE [Concomitant]
  6. MORPHINE SULFATE [Concomitant]
  7. ONDANSETRON [Concomitant]
  8. METHYLPREDNISOLONE [Concomitant]
  9. NYSTATIN [Concomitant]
  10. DURAGESIC-100 [Concomitant]
  11. ROCEPHIN [Concomitant]
  12. CLINIMIX 5/20 SULFITE FREE IN DEXTROSE 20% [Suspect]
     Indication: PARENTERAL NUTRITION
     Dosage: 25 ML/HR X 4 HR, 50 ML / HR
     Route: 042
     Dates: start: 20110726, end: 20110726
  13. INTRALIPID 20% [Concomitant]
     Indication: PARENTERAL NUTRITION
     Dosage: SEE ABOVE
     Dates: start: 20110726, end: 20110726
  14. FAMOTIDINE [Concomitant]

REACTIONS (9)
  - BLOOD PRESSURE INCREASED [None]
  - ANXIETY [None]
  - CHEST DISCOMFORT [None]
  - HEART RATE INCREASED [None]
  - FLUSHING [None]
  - NAUSEA [None]
  - HEADACHE [None]
  - VOMITING [None]
  - HYPERSENSITIVITY [None]
